FAERS Safety Report 8256530-8 (Version None)
Quarter: 2012Q2

REPORT INFORMATION
  Report Type: 
  Country: None (occurrence: None)
  Receive Date: 20120403
  Receipt Date: 20120320
  Transmission Date: 20120825
  Serious: Yes (Hospitalization)
  Sender: FDA-Public Use
  Company Number: DE-ELI_LILLY_AND_COMPANY-DE201112007600

PATIENT
  Sex: Female
  Weight: 66 kg

DRUGS (19)
  1. METOCLOPRAMIDE [Concomitant]
     Indication: NAUSEA
     Dosage: UNK
     Dates: start: 20110807
  2. CISPLATIN [Suspect]
     Indication: NON-SMALL CELL LUNG CANCER
     Dosage: 75 MG/M2, OTHER
     Route: 042
     Dates: start: 20110621, end: 20110803
  3. NALOXONE [Concomitant]
     Indication: PAIN
     Dosage: UNK
     Dates: start: 20110604
  4. POLYETHYLENE GLYCOL [Concomitant]
     Indication: CONSTIPATION
     Dosage: UNK
     Dates: start: 20110606
  5. DICLOFENAC SODIUM [Concomitant]
     Indication: PAIN
     Dosage: UNK
     Dates: start: 20110614
  6. HALDOL [Concomitant]
     Indication: NAUSEA
     Dosage: UNK
     Dates: start: 20110714
  7. FOLSAN [Concomitant]
     Indication: PREMEDICATION
     Dosage: UNK
     Dates: start: 20110608
  8. BROMAZEPAM [Concomitant]
     Indication: DEPRESSION
     Dosage: UNK
     Dates: start: 20110601
  9. ONDANSETRON [Concomitant]
     Indication: NAUSEA
     Dosage: UNK
     Dates: start: 20111108
  10. DEXAMETHASONE [Concomitant]
     Indication: PREMEDICATION
     Dosage: UNK
     Dates: start: 20110625, end: 20110726
  11. RAMUCIRUMAB (1121B) (LY3009806) [Suspect]
     Indication: NON-SMALL CELL LUNG CANCER
     Dosage: 10 MG/KG, OTHER
     Route: 042
     Dates: start: 20110621, end: 20111219
  12. PEMETREXED [Suspect]
     Indication: NON-SMALL CELL LUNG CANCER
     Dosage: 500 MG/M2, OTHER
     Route: 042
     Dates: start: 20110621, end: 20111219
  13. OXYCODONE HYDROCHLORIDE [Concomitant]
     Indication: BACK PAIN
     Dosage: UNK
     Dates: start: 20110614
  14. TORSEMIDE [Concomitant]
     Indication: OEDEMA
     Dosage: UNK
     Dates: start: 20111122
  15. DEXAMETHASONE SODIUM PHOSPHATE [Concomitant]
     Indication: NAUSEA
     Dosage: UNK
     Dates: start: 20111108
  16. DIPYRONE TAB [Concomitant]
     Indication: PAIN
     Dosage: UNK
     Dates: start: 20110601
  17. VITAMIN B-12 [Concomitant]
     Indication: PREMEDICATION
     Dosage: UNK
     Dates: start: 20110801, end: 20110801
  18. PARACODIN BITARTRATE TAB [Concomitant]
     Indication: COUGH
     Dosage: UNK
     Dates: start: 20110601
  19. PANTOPRAZOLE [Concomitant]
     Indication: PROPHYLAXIS AGAINST GASTROINTESTINAL ULCER
     Dosage: UNK
     Dates: start: 20110603

REACTIONS (2)
  - GENERAL PHYSICAL HEALTH DETERIORATION [None]
  - GASTRITIS [None]
